FAERS Safety Report 19391872 (Version 1)
Quarter: 2021Q2

REPORT INFORMATION
  Report Type: Report from Study
  Country: DK (occurrence: DK)
  Receive Date: 20210609
  Receipt Date: 20210609
  Transmission Date: 20210717
  Serious: Yes (Hospitalization)
  Sender: FDA-Public Use
  Company Number: DK-SUN PHARMACEUTICAL INDUSTRIES LTD-2021R1-299575

PATIENT
  Age: 92 Year
  Sex: Female

DRUGS (1)
  1. BUPRENORFINE [Suspect]
     Active Substance: BUPRENORPHINE
     Indication: PRODUCT USED FOR UNKNOWN INDICATION
     Dosage: 15 MCG/HR, UNK
     Route: 062

REACTIONS (5)
  - Overdose [Unknown]
  - Fatigue [Unknown]
  - Hypotension [Unknown]
  - Bedridden [Unknown]
  - Confusional state [Unknown]
